FAERS Safety Report 9057433 (Version 3)
Quarter: 2013Q1

REPORT INFORMATION
  Report Type: Spontaneous
  Country: JP (occurrence: JP)
  Receive Date: 20130204
  Receipt Date: 20130320
  Transmission Date: 20140127
  Serious: Yes (Hospitalization, Other)
  Sender: FDA-Public Use
  Company Number: JP-PFIZER INC-2013033698

PATIENT
  Age: 72 Year
  Sex: Male
  Weight: 64 kg

DRUGS (7)
  1. NOVASTAN [Suspect]
     Indication: CEREBRAL INFARCTION
     Dosage: 50 MG, UNK
     Route: 041
     Dates: start: 20110725, end: 20110726
  2. NOVASTAN [Suspect]
     Dosage: 20 MG, DAILY
     Route: 041
     Dates: start: 20110727, end: 20110729
  3. PLAVIX [Suspect]
     Indication: CEREBRAL INFARCTION
     Dosage: 75 MG, DAILY
     Route: 048
     Dates: start: 20110725, end: 20110730
  4. PLAVIX [Suspect]
     Dosage: 75 MG, UNK
     Route: 048
     Dates: start: 20110811
  5. HEPARIN [Suspect]
     Indication: CEREBRAL INFARCTION
     Dosage: 12 KIU, UNK
     Route: 042
     Dates: start: 20110727, end: 20110729
  6. BAYASPIRIN [Suspect]
     Indication: CEREBRAL INFARCTION
     Dosage: 100 MG, DAILY
     Route: 048
     Dates: start: 20110725, end: 20110728
  7. DEXTRAN [Suspect]
     Indication: CEREBRAL INFARCTION
     Dosage: 500 ML, DAILY
     Route: 042
     Dates: start: 20110725, end: 20110729

REACTIONS (3)
  - Anaemia [Recovered/Resolved]
  - Muscle haemorrhage [Recovered/Resolved]
  - Psoas abscess [Recovered/Resolved]
